FAERS Safety Report 9539263 (Version 1)
Quarter: 2013Q3

REPORT INFORMATION
  Report Type: Spontaneous
  Country: SG (occurrence: SG)
  Receive Date: 20130920
  Receipt Date: 20130920
  Transmission Date: 20140515
  Serious: Yes (Other)
  Sender: FDA-Public Use
  Company Number: SG-PFIZER INC-2013268777

PATIENT
  Age: 37 Year
  Sex: Female

DRUGS (1)
  1. LIGNOCAINE [Suspect]
     Dosage: UNK

REACTIONS (3)
  - Rash [Unknown]
  - Loss of consciousness [Unknown]
  - Dyspnoea [Unknown]
